FAERS Safety Report 9316922 (Version 1)
Quarter: 2013Q2

REPORT INFORMATION
  Report Type: Spontaneous
  Country: US (occurrence: US)
  Receive Date: 20130530
  Receipt Date: 20130530
  Transmission Date: 20140414
  Serious: Yes (Hospitalization, Other)
  Sender: FDA-Public Use
  Company Number: US-009507513-1003USA01349

PATIENT
  Sex: Female
  Weight: 80.74 kg

DRUGS (7)
  1. FOSAMAX [Suspect]
     Indication: OSTEOPOROSIS
     Dosage: 70 MG, UNK
     Route: 048
     Dates: start: 19980417, end: 200901
  2. FOSAMAX [Suspect]
     Indication: OSTEOPENIA
  3. FOSAMAX PLUS D [Suspect]
     Indication: OSTEOPENIA
     Dosage: 70/2800
     Route: 048
     Dates: start: 19981023, end: 20080122
  4. FOSAMAX PLUS D [Suspect]
     Indication: OSTEOPOROSIS
     Dosage: 70/5600
     Route: 048
     Dates: start: 200805, end: 200901
  5. MK-9278 [Concomitant]
  6. ATENOLOL [Concomitant]
     Indication: HYPERTENSION
     Dosage: 50 MG, QD
     Dates: start: 199703
  7. MK-0152 [Concomitant]
     Indication: HYPERTENSION
     Dosage: 25 MG, QD
     Dates: start: 199703

REACTIONS (28)
  - Femur fracture [Recovered/Resolved]
  - Intramedullary rod insertion [Unknown]
  - Intramedullary rod insertion [Unknown]
  - Femoral neck fracture [Unknown]
  - Femur fracture [Recovered/Resolved]
  - Impaired healing [Unknown]
  - Impaired healing [Unknown]
  - Fall [Unknown]
  - Femur fracture [Recovered/Resolved]
  - Laceration [Unknown]
  - Hyperlipidaemia [Unknown]
  - Rhinorrhoea [Unknown]
  - Cough [Unknown]
  - Arthropathy [Unknown]
  - Pelvic fluid collection [Unknown]
  - Ovarian cyst [Unknown]
  - Oligomenorrhoea [Unknown]
  - Arthropathy [Unknown]
  - Premenstrual syndrome [Unknown]
  - Incontinence [Unknown]
  - Medical device removal [Unknown]
  - Muscle atrophy [Unknown]
  - Joint effusion [Unknown]
  - Tendon disorder [Unknown]
  - Ilium fracture [Unknown]
  - Arthralgia [Unknown]
  - Drug hypersensitivity [Unknown]
  - Constipation [Unknown]
